FAERS Safety Report 12450978 (Version 1)
Quarter: 2016Q2

REPORT INFORMATION
  Report Type: Spontaneous
  Country: US (occurrence: None)
  Receive Date: 20160608
  Receipt Date: 20160608
  Transmission Date: 20160815
  Serious: Yes (Other)
  Sender: FDA-Public Use
  Company Number: None

PATIENT
  Age: 51 Year
  Sex: Female
  Weight: 56.25 kg

DRUGS (2)
  1. SODIUM CHLORIDE. [Suspect]
     Active Substance: SODIUM CHLORIDE
     Dates: start: 20160607, end: 20160607
  2. LEUCOVORIN. [Suspect]
     Active Substance: LEUCOVORIN

REACTIONS (3)
  - Accidental exposure to product [None]
  - Device issue [None]
  - Product container issue [None]

NARRATIVE: CASE EVENT DATE: 20160607
